FAERS Safety Report 7371902-1 (Version None)
Quarter: 2011Q1

REPORT INFORMATION
  Report Type: 
  Country: None (occurrence: None)
  Receive Date: 20110324
  Receipt Date: 20110315
  Transmission Date: 20110831
  Serious: Yes (Hospitalization, Other)
  Sender: FDA-Public Use
  Company Number: US-ASTRAZENECA-2010SE35497

PATIENT
  Age: 69 Year
  Sex: Female

DRUGS (5)
  1. PLAVIX [Concomitant]
  2. LOPRESSOR [Concomitant]
  3. INSULIN [Concomitant]
  4. CRESTOR [Suspect]
     Route: 048
  5. PREDNISONE [Concomitant]

REACTIONS (10)
  - MYALGIA [None]
  - HEPATIC FAILURE [None]
  - RESPIRATORY FAILURE [None]
  - PARALYSIS [None]
  - MYOGLOBIN URINE PRESENT [None]
  - PROTHROMBIN TIME PROLONGED [None]
  - WALKING AID USER [None]
  - RENAL FAILURE [None]
  - BLOOD CREATINE PHOSPHOKINASE INCREASED [None]
  - MYOPATHY [None]
